FAERS Safety Report 21997700 (Version 1)
Quarter: 2023Q1

REPORT INFORMATION
  Report Type: Spontaneous
  Country: DE (occurrence: DE)
  Receive Date: 20230216
  Receipt Date: 20230216
  Transmission Date: 20230417
  Serious: Yes (Other)
  Sender: FDA-Public Use
  Company Number: None

PATIENT
  Sex: Male
  Weight: 127 kg

DRUGS (11)
  1. ROSUVASTATIN [Suspect]
     Active Substance: ROSUVASTATIN
     Indication: Product used for unknown indication
     Dosage: 10 MILLIGRAM DAILY; 10 MG, QD, THERAPY END DATE : ASKU
     Dates: start: 20190328
  2. METFORMIN HYDROCHLORIDE [Suspect]
     Active Substance: METFORMIN HYDROCHLORIDE
     Indication: Product used for unknown indication
     Dosage: 2000 MILLIGRAM DAILY; 1000 MG, BID, UNIT DOSE: 2000 MG , FREQUENCY TIME : 1 DAY, THERAPY END DATE :
     Dates: start: 20100330
  3. PANTOPRAZOLE [Suspect]
     Active Substance: PANTOPRAZOLE
     Indication: Product used for unknown indication
     Dosage: 20 MILLIGRAM DAILY; 20 MG, QD, THERAPY END DATE : ASKU
     Dates: start: 20170328
  4. EPLERENONE [Suspect]
     Active Substance: EPLERENONE
     Indication: Product used for unknown indication
     Dosage: 25 MILLIGRAM DAILY; 25 MG, QD, STRENGTH : 25 MG , THERAPY END DATE : ASKU
     Dates: start: 20200113
  5. METOPROLOL [Suspect]
     Active Substance: METOPROLOL
     Indication: Product used for unknown indication
     Dosage: 50 OT, BID, THERAPY END DATE : ASKU
     Dates: start: 20170328
  6. HYDROCHLOROTHIAZIDE\VALSARTAN [Suspect]
     Active Substance: HYDROCHLOROTHIAZIDE\VALSARTAN
     Indication: Product used for unknown indication
     Dosage: 1 DOSAGE FORMS DAILY; 1 DF, QD, VALSARTAN - 1 A PHARMA PLUS 160 MG/12.5 MG FILM TABLETS, THERAPY END
     Dates: start: 20100330
  7. INSULIN ASPART [Suspect]
     Active Substance: INSULIN ASPART
     Indication: Product used for unknown indication
     Dosage: 100 U/ML, UNKNOWN, THERAPY END DATE : ASKU
     Dates: start: 20160328
  8. ASPIRIN [Suspect]
     Active Substance: ASPIRIN
     Indication: Product used for unknown indication
     Dosage: 100, QD, THERAPY END DATE : ASKU
     Dates: start: 20170301
  9. AMLODIPINE BESYLATE [Suspect]
     Active Substance: AMLODIPINE BESYLATE
     Indication: Product used for unknown indication
     Dosage: 10 MILLIGRAM DAILY; 5 MG, BID, AMLODIPINE BESILATE DEXCEL, UNIT DOSE: 10 MG , FREQUENCY TIME : 1 DAY
     Dates: start: 20170328
  10. ROXITHROMYCIN [Suspect]
     Active Substance: ROXITHROMYCIN
     Indication: Product used for unknown indication
     Dosage: 300 OT, QD, DURATION : 7 DAYS
     Dates: start: 20200320, end: 20200326
  11. TOUJEO [Suspect]
     Active Substance: INSULIN GLARGINE
     Indication: Product used for unknown indication
     Dosage: 300 U/ML (28 DAILY), THERAPY END DATE : ASKU
     Dates: start: 20190606

REACTIONS (9)
  - Arrhythmia [Unknown]
  - Hypotonia [Unknown]
  - Cardiovascular disorder [Unknown]
  - Palpitations [Unknown]
  - Arthralgia [Unknown]
  - Diarrhoea [Unknown]
  - Abdominal pain upper [Unknown]
  - Influenza [Unknown]
  - Nausea [Unknown]

NARRATIVE: CASE EVENT DATE: 20200321
